FAERS Safety Report 24387382 (Version 3)
Quarter: 2024Q4

REPORT INFORMATION
  Report Type: Spontaneous
  Country: IN (occurrence: IN)
  Receive Date: 20241002
  Receipt Date: 20241008
  Transmission Date: 20250115
  Serious: Yes (Other)
  Sender: PFIZER
  Company Number: IN-PFIZER INC-202400264860

PATIENT
  Age: 51 Year
  Sex: Female

DRUGS (5)
  1. DOXORUBICIN HYDROCHLORIDE [Suspect]
     Active Substance: DOXORUBICIN HYDROCHLORIDE
     Indication: Metaplastic breast carcinoma
     Dosage: 75 MG/M2, CYCLIC (D1, CYCLE #1 AND 2)
     Route: 042
  2. DOXORUBICIN HYDROCHLORIDE [Suspect]
     Active Substance: DOXORUBICIN HYDROCHLORIDE
     Dosage: 20 % REDUCTION IN THE SUBSEQUENT CYCLE
  3. IFOSFAMIDE [Suspect]
     Active Substance: IFOSFAMIDE
     Indication: Metaplastic breast carcinoma
     Dosage: 1.5 G/M2 OVER D1-D4 CYCLIC, 6 CYCLES GIVEN ONCE EVERY 3 WEEKS
     Route: 042
  4. PEGYLATED GRANULOCYTE COLONY-STIMULATING FACTOR [Concomitant]
     Active Substance: PEGYLATED GRANULOCYTE COLONY-STIMULATING FACTOR
     Indication: Metaplastic breast carcinoma
     Dosage: 6 MG, CYCLIC,  ON D5, 6 CYCLES GIVEN ONCE EVERY 3 WEEKS
     Route: 058
  5. MESNA [Concomitant]
     Active Substance: MESNA
     Dosage: 60 % OF IFOSFAMIDE DOSE

REACTIONS (4)
  - Febrile neutropenia [Unknown]
  - Sepsis [Unknown]
  - Anaemia [Unknown]
  - Diarrhoea [Unknown]
